FAERS Safety Report 11405191 (Version 1)
Quarter: 2015Q3

REPORT INFORMATION
  Report Type: Spontaneous
  Country: MX (occurrence: MX)
  Receive Date: 20150821
  Receipt Date: 20150821
  Transmission Date: 20151125
  Serious: Yes (Hospitalization, Other)
  Sender: FDA-Public Use
  Company Number: PHHY2015MX099139

PATIENT
  Age: 22 Year
  Sex: Female

DRUGS (3)
  1. METHYLPREDNISOLONE. [Suspect]
     Active Substance: METHYLPREDNISOLONE
     Indication: GOODPASTURE^S SYNDROME
     Dosage: 1 G/ DAY
     Route: 065
  2. RITUXIMAB [Suspect]
     Active Substance: RITUXIMAB
     Indication: GOODPASTURE^S SYNDROME
     Route: 065
  3. CYCLOPHOSPHAMIDE. [Suspect]
     Active Substance: CYCLOPHOSPHAMIDE
     Indication: GOODPASTURE^S SYNDROME
     Dosage: 720 MG, UNK
     Route: 065

REACTIONS (8)
  - Hypertension [Unknown]
  - Extensor plantar response [Unknown]
  - Renal impairment [Unknown]
  - Posterior reversible encephalopathy syndrome [Recovered/Resolved]
  - Visual acuity reduced [Unknown]
  - Headache [Unknown]
  - Brain oedema [Unknown]
  - Hyperreflexia [Unknown]
